FAERS Safety Report 23944184 (Version 1)
Quarter: 2024Q2

REPORT INFORMATION
  Report Type: Spontaneous
  Country: US (occurrence: US)
  Receive Date: 20240606
  Receipt Date: 20240606
  Transmission Date: 20240716
  Serious: No
  Sender: FDA-Public Use
  Company Number: US-MankindUS-000174

PATIENT
  Age: 6 Year
  Sex: Male
  Weight: 25.31 kg

DRUGS (2)
  1. OFLOXACIN [Suspect]
     Active Substance: OFLOXACIN
     Indication: Conjunctivitis
     Dosage: STRENGTH: 5 ML
     Dates: start: 20240430, end: 20240430
  2. AMOXICILLIN [Suspect]
     Active Substance: AMOXICILLIN
     Indication: Ear infection
     Dosage: AT 07:30AM/PM
     Dates: start: 20240429

REACTIONS (4)
  - Muscle spasms [Unknown]
  - Product colour issue [Unknown]
  - Pain in extremity [Recovered/Resolved]
  - Chills [Unknown]

NARRATIVE: CASE EVENT DATE: 20240430
